FAERS Safety Report 6172595-1 (Version None)
Quarter: 2009Q2

REPORT INFORMATION
  Report Type: 
  Country: None (occurrence: None)
  Receive Date: 20090428
  Receipt Date: 20090420
  Transmission Date: 20091009
  Serious: No
  Sender: FDA-Public Use
  Company Number: APP200900212

PATIENT
  Age: 63 Year
  Sex: Female
  Weight: 46.2669 kg

DRUGS (2)
  1. XYLOCAINE [Suspect]
     Indication: CLUSTER HEADACHE
     Dosage: ONCE, INJECTION
     Dates: start: 20090407, end: 20090407
  2. ANAPROX [Concomitant]

REACTIONS (1)
  - INJECTION SITE PAIN [None]
